FAERS Safety Report 8608033-6 (Version None)
Quarter: 2012Q3

REPORT INFORMATION
  Report Type: 
  Country: None (occurrence: None)
  Receive Date: 20120821
  Receipt Date: 20120814
  Transmission Date: 20120928
  Serious: Yes (Life-Threatening, Other)
  Sender: FDA-Public Use
  Company Number: US-ASTRAZENECA-2012SE54368

PATIENT
  Age: 53 Year
  Sex: Male

DRUGS (7)
  1. NEXIUM [Suspect]
     Indication: GASTROOESOPHAGEAL REFLUX DISEASE
     Route: 048
  2. ALBUTEROL [Concomitant]
  3. NERVE PILL [Concomitant]
  4. ADVAIR [Concomitant]
  5. VENTOLIN [Concomitant]
  6. METFORMIN HCL [Concomitant]
  7. ZANTAC [Concomitant]

REACTIONS (11)
  - TERMINAL STATE [None]
  - EMPHYSEMA [None]
  - PULMONARY THROMBOSIS [None]
  - EYE DEGENERATIVE DISORDER [None]
  - DEAFNESS [None]
  - HYPERTENSION [None]
  - BLINDNESS [None]
  - CARDIAC DISORDER [None]
  - CHRONIC OBSTRUCTIVE PULMONARY DISEASE [None]
  - GLAUCOMA [None]
  - DIABETES MELLITUS [None]
